FAERS Safety Report 4376654-5 (Version None)
Quarter: 2004Q2

REPORT INFORMATION
  Report Type: 
  Country: None (occurrence: None)
  Receive Date: 20040608
  Receipt Date: 20040525
  Transmission Date: 20050107
  Serious: Yes (Other)
  Sender: FDA-Public Use
  Company Number: SUS1-2004-00318

PATIENT
  Age: 42 Year
  Sex: Female

DRUGS (1)
  1. ADDERALL XR 30 [Suspect]
     Dosage: 30 MG

REACTIONS (1)
  - ANXIETY [None]
